FAERS Safety Report 4686074-1 (Version None)
Quarter: 2005Q2

REPORT INFORMATION
  Report Type: 
  Country: None (occurrence: None)
  Receive Date: 20050609
  Receipt Date: 20050531
  Transmission Date: 20051028
  Serious: Yes (Hospitalization)
  Sender: FDA-Public Use
  Company Number: 200511841FR

PATIENT
  Age: 81 Year
  Sex: Female

DRUGS (4)
  1. LASILIX [Suspect]
     Route: 048
     Dates: end: 20050322
  2. ALDACTONE [Suspect]
     Route: 048
     Dates: end: 20050322
  3. DIFFU K [Suspect]
     Route: 048
     Dates: end: 20050322
  4. HYTACAND [Suspect]
     Route: 048
     Dates: end: 20050322

REACTIONS (3)
  - DEHYDRATION [None]
  - HYPERKALAEMIA [None]
  - RENAL FAILURE [None]
